FAERS Safety Report 17485816 (Version 2)
Quarter: 2020Q2

REPORT INFORMATION
  Report Type: Spontaneous
  Country: US (occurrence: US)
  Receive Date: 20200303
  Receipt Date: 20200630
  Transmission Date: 20200713
  Serious: No
  Sender: FDA-Public Use
  Company Number: US-ELI_LILLY_AND_COMPANY-US202002014115

PATIENT
  Age: 67 Year
  Sex: Female

DRUGS (3)
  1. HUMULIN N [Suspect]
     Active Substance: INSULIN HUMAN
     Dosage: 15 U, BID
     Route: 065
  2. HUMULIN N [Suspect]
     Active Substance: INSULIN HUMAN
     Indication: PRODUCT USED FOR UNKNOWN INDICATION
     Dosage: 15 U, BID
     Route: 065
     Dates: start: 2016
  3. HUMALOG [Suspect]
     Active Substance: INSULIN LISPRO
     Indication: PRODUCT USED FOR UNKNOWN INDICATION
     Dosage: 4 U, TID
     Route: 065
     Dates: start: 20200603, end: 20200607

REACTIONS (4)
  - Polymyalgia rheumatica [Unknown]
  - Malaise [Unknown]
  - Nausea [Unknown]
  - Accidental underdose [Unknown]

NARRATIVE: CASE EVENT DATE: 20200227
